FAERS Safety Report 9298631 (Version 2)
Quarter: 2013Q2

REPORT INFORMATION
  Report Type: Report from Study
  Country: JP (occurrence: JP)
  Receive Date: 20130520
  Receipt Date: 20130606
  Transmission Date: 20140414
  Serious: Yes (Other)
  Sender: FDA-Public Use
  Company Number: JP-PFIZER INC-2013150761

PATIENT
  Age: 65 Year
  Sex: Female

DRUGS (1)
  1. RANDA [Suspect]
     Indication: CERVIX CARCINOMA
     Dosage: 5 MG/M2, WITH 500ML SODIUM CHLORIDE SOLUTION IN A 2 HOURS INFUSION
     Route: 042

REACTIONS (1)
  - Enterocolitis [Unknown]
